FAERS Safety Report 10250556 (Version 1)
Quarter: 2014Q2

REPORT INFORMATION
  Report Type: Spontaneous
  Country: US (occurrence: US)
  Receive Date: 20140620
  Receipt Date: 20140620
  Transmission Date: 20141212
  Serious: Yes (Hospitalization)
  Sender: FDA-Public Use
  Company Number: US-GLAXOSMITHKLINE-A1077121A

PATIENT
  Age: 83 Year
  Sex: Female

DRUGS (3)
  1. LOVAZA [Suspect]
     Indication: BLOOD CHOLESTEROL
     Dosage: 2CAPL TWICE PER DAY
     Route: 048
  2. SYNTHROID [Concomitant]
  3. MULTAQ [Concomitant]

REACTIONS (2)
  - Pituitary tumour [Unknown]
  - Pituitary tumour removal [Recovered/Resolved]
